FAERS Safety Report 12806073 (Version 2)
Quarter: 2016Q4

REPORT INFORMATION
  Report Type: Report from Study
  Country: JP (occurrence: JP)
  Receive Date: 20161004
  Receipt Date: 20161219
  Transmission Date: 20170207
  Serious: Yes (Other)
  Sender: FDA-Public Use
  Company Number: JP-EISAI MEDICAL RESEARCH-EC-2016-020860

PATIENT
  Age: 78 Year
  Sex: Male
  Weight: 60 kg

DRUGS (16)
  1. LENVIMA [Suspect]
     Active Substance: LENVATINIB
     Indication: PAPILLARY THYROID CANCER
     Route: 048
     Dates: start: 20150825, end: 20150831
  2. LENVIMA [Suspect]
     Active Substance: LENVATINIB
     Route: 048
     Dates: start: 20150911, end: 20151001
  3. CARDENALIN [Concomitant]
     Active Substance: DOXAZOSIN MESYLATE
  4. LEVOTHYROXINE SODIUM HYDRATE [Concomitant]
     Active Substance: LEVOTHYROXINE SODIUM
  5. CALFINA [Concomitant]
     Active Substance: ALFACALCIDOL
  6. MUCOSOLVAN [Concomitant]
     Active Substance: AMBROXOL HYDROCHLORIDE
  7. TSUMURA JUZENTAIHOTO EXTRACT GRANULES FOR ETHICAL USE [Concomitant]
  8. JUVELA N [Concomitant]
     Active Substance: TOCOPHERYL NICOTINATE, D-.ALPHA.
  9. LENVIMA [Suspect]
     Active Substance: LENVATINIB
     Route: 048
     Dates: start: 20150901, end: 20150904
  10. ADALAT [Concomitant]
     Active Substance: NIFEDIPINE
  11. NIFEDIPINE/NIFEDIPINE CR [Concomitant]
  12. LENVIMA [Suspect]
     Active Substance: LENVATINIB
     Route: 048
     Dates: start: 20151009, end: 20151115
  13. BAYASPIRIN [Concomitant]
     Active Substance: ASPIRIN
  14. MEILAX [Concomitant]
     Active Substance: ETHYL LOFLAZEPATE
  15. ECARD [Concomitant]
     Active Substance: CANDESARTAN CILEXETIL\HYDROCHLOROTHIAZIDE
  16. ETHYL ICOSAPENTATE [Concomitant]
     Active Substance: ICOSAPENT ETHYL

REACTIONS (1)
  - Cardiac failure [Not Recovered/Not Resolved]

NARRATIVE: CASE EVENT DATE: 20151125
